FAERS Safety Report 19636657 (Version 1)
Quarter: 2021Q3

REPORT INFORMATION
  Report Type: Spontaneous
  Country: US (occurrence: US)
  Receive Date: 20210730
  Receipt Date: 20210730
  Transmission Date: 20211014
  Serious: Yes (Hospitalization)
  Sender: FDA-Public Use
  Company Number: None

PATIENT
  Age: 40 Year
  Sex: Female
  Weight: 101.6 kg

DRUGS (1)
  1. CASIRIVIMAB AND IMDEVIMAB [Suspect]
     Active Substance: CASIRIVIMAB\IMDEVIMAB
     Indication: COVID-19
     Dosage: ?          OTHER FREQUENCY:ONCE;?
     Route: 042
     Dates: start: 20210729, end: 20210729

REACTIONS (4)
  - Dizziness [None]
  - Dyspnoea [None]
  - Pyrexia [None]
  - Oxygen saturation decreased [None]

NARRATIVE: CASE EVENT DATE: 20210729
